FAERS Safety Report 8615853-0 (Version None)
Quarter: 2012Q3

REPORT INFORMATION
  Report Type: 
  Country: None (occurrence: None)
  Receive Date: 20120823
  Receipt Date: 20120731
  Transmission Date: 20120928
  Serious: No
  Sender: FDA-Public Use
  Company Number: US-009507513-1208USA000412

PATIENT

DRUGS (7)
  1. JANUVIA [Suspect]
     Indication: TYPE 2 DIABETES MELLITUS
     Dosage: 100 MG, QD
     Route: 048
     Dates: start: 20120401
  2. LOVASTATIN [Concomitant]
  3. ALLOPURINOL [Concomitant]
  4. ATENOLOL [Concomitant]
  5. DAPSONE [Concomitant]
  6. METFORMIN [Concomitant]
  7. LISINOPRIL [Concomitant]

REACTIONS (1)
  - BLOOD CHOLESTEROL ABNORMAL [None]
